FAERS Safety Report 7679424-5 (Version None)
Quarter: 2011Q3

REPORT INFORMATION
  Report Type: 
  Country: None (occurrence: None)
  Receive Date: 20110812
  Receipt Date: 20110801
  Transmission Date: 20111222
  Serious: Yes (Hospitalization)
  Sender: FDA-Public Use
  Company Number: US-JNJFOC-20070502363

PATIENT
  Sex: Male
  Weight: 40.45 kg

DRUGS (4)
  1. INFLIXIMAB [Suspect]
     Indication: INFLAMMATORY BOWEL DISEASE
     Route: 042
     Dates: start: 20070301
  2. INFLIXIMAB [Suspect]
     Route: 042
     Dates: start: 20051213
  3. MERCAPTOPURINE [Concomitant]
  4. MESALAMINE [Concomitant]

REACTIONS (2)
  - ABDOMINAL PAIN [None]
  - VOMITING [None]
